FAERS Safety Report 6107551-2 (Version None)
Quarter: 2009Q1

REPORT INFORMATION
  Report Type: 
  Country: None (occurrence: None)
  Receive Date: 20090309
  Receipt Date: 20090226
  Transmission Date: 20090719
  Serious: Yes (Hospitalization, Other)
  Sender: FDA-Public Use
  Company Number: PHHY2009JP06080

PATIENT
  Age: 25 Year
  Sex: Male

DRUGS (2)
  1. TEGRETOL [Suspect]
     Indication: STATUS EPILEPTICUS
     Dosage: UNK
     Route: 048
  2. DEPAKENE [Suspect]
     Indication: STATUS EPILEPTICUS
     Dosage: UNK
     Route: 048

REACTIONS (16)
  - ALTERED STATE OF CONSCIOUSNESS [None]
  - CONVULSION [None]
  - EOSINOPHILIA [None]
  - HEADACHE [None]
  - INFLAMMATION [None]
  - ORTHOPNOEA [None]
  - OXYGEN SATURATION DECREASED [None]
  - PERICARDIAL EFFUSION [None]
  - PERICARDIAL HAEMORRHAGE [None]
  - PERICARDIOTOMY [None]
  - PERICARDITIS CONSTRICTIVE [None]
  - PLEURAL EFFUSION [None]
  - PLEURISY [None]
  - PYREXIA [None]
  - RESPIRATORY FAILURE [None]
  - RIGHT VENTRICULAR FAILURE [None]
